FAERS Safety Report 6395868-6 (Version None)
Quarter: 2009Q4

REPORT INFORMATION
  Report Type: 
  Country: None (occurrence: None)
  Receive Date: 20091009
  Receipt Date: 20090817
  Transmission Date: 20100525
  Serious: No
  Sender: FDA-Public Use
  Company Number: A0799524A

PATIENT
  Age: 56 Year
  Sex: Female

DRUGS (2)
  1. TYKERB [Suspect]
     Dosage: 1250MG PER DAY
     Route: 048
     Dates: start: 20090714
  2. XELODA [Suspect]
     Route: 048
     Dates: start: 20090714

REACTIONS (6)
  - ASTHENIA [None]
  - DIARRHOEA [None]
  - DYSGEUSIA [None]
  - ENERGY INCREASED [None]
  - FATIGUE [None]
  - INSOMNIA [None]
